FAERS Safety Report 4854092-6 (Version None)
Quarter: 2005Q4

REPORT INFORMATION
  Report Type: 
  Country: None (occurrence: None)
  Receive Date: 20051213
  Receipt Date: 20051201
  Transmission Date: 20060501
  Serious: Yes (Hospitalization, Other)
  Sender: FDA-Public Use
  Company Number: 2005047967

PATIENT
  Sex: Female

DRUGS (7)
  1. XANAX [Suspect]
     Indication: NERVOUSNESS
     Dosage: 1.5 MG (0.5 MG, 3 IN 1 D), ORAL
     Route: 048
     Dates: start: 19990101
  2. LOPRESSOR [Concomitant]
  3. LOTENSIN [Concomitant]
  4. HYDROCHLOROTHIAZIDE [Concomitant]
  5. TOPROL (METOPROLOL) [Concomitant]
  6. ESTROGENS SOL/INJ [Concomitant]
  7. CLONIDINE [Concomitant]

REACTIONS (16)
  - ABDOMINAL DISTENSION [None]
  - ANOREXIA [None]
  - BLOOD PRESSURE INCREASED [None]
  - CHOLELITHIASIS [None]
  - DEPRESSION [None]
  - DRUG INEFFECTIVE [None]
  - EATING DISORDER [None]
  - HEADACHE [None]
  - INCORRECT DOSE ADMINISTERED [None]
  - INSOMNIA [None]
  - MALAISE [None]
  - NAUSEA [None]
  - NERVOUSNESS [None]
  - THERAPEUTIC RESPONSE UNEXPECTED WITH DRUG SUBSTITUTION [None]
  - THINKING ABNORMAL [None]
  - WEIGHT DECREASED [None]
